FAERS Safety Report 20152664 (Version 1)
Quarter: 2021Q4

REPORT INFORMATION
  Report Type: Spontaneous
  Country: GR (occurrence: GR)
  Receive Date: 20211206
  Receipt Date: 20211206
  Transmission Date: 20220303
  Serious: Yes (Death, Other)
  Sender: FDA-Public Use
  Company Number: GR-VIO-2019-00003

PATIENT
  Age: 40 Year
  Sex: Female

DRUGS (3)
  1. FENTANYL [Suspect]
     Active Substance: FENTANYL
     Indication: Anaesthesia
     Dosage: 25 MICROGRAM
     Route: 008
  2. DEXTROSE [Suspect]
     Active Substance: DEXTROSE
     Indication: Anaesthesia
     Dosage: UNK
     Route: 008
  3. CHIROCAINE [Suspect]
     Active Substance: LEVOBUPIVACAINE HYDROCHLORIDE
     Indication: Anaesthesia
     Dosage: UNK
     Route: 008

REACTIONS (2)
  - Pulseless electrical activity [Fatal]
  - Exposure during pregnancy [Unknown]
